FAERS Safety Report 6711935-9 (Version None)
Quarter: 2010Q2

REPORT INFORMATION
  Report Type: 
  Country: None (occurrence: None)
  Receive Date: 20100505
  Receipt Date: 20100201
  Transmission Date: 20101027
  Serious: No
  Sender: FDA-Public Use
  Company Number: US-TYCO HEALTHCARE/MALLINCKRODT-T201000606

PATIENT
  Sex: Male
  Weight: 122.45 kg

DRUGS (4)
  1. METHADONE HCL [Suspect]
     Indication: PAIN
     Dosage: 50-55 MG, QD
     Route: 048
     Dates: start: 19930101
  2. GLIPIZIDE [Concomitant]
     Indication: DIABETES MELLITUS
     Dosage: UP TO 2, 10 MG TABS BID
     Route: 048
  3. LISINOPRIL HYDROCHLORTHIAZID [Concomitant]
     Indication: HYPERTENSION
     Dosage: 20/25 QD
     Route: 048
  4. ASPIRIN [Concomitant]
     Dosage: 325 MG, QD
     Route: 048

REACTIONS (2)
  - CONSTIPATION [None]
  - MUSCLE SPASMS [None]
